FAERS Safety Report 8820465 (Version 1)
Quarter: 2012Q4

REPORT INFORMATION
  Report Type: 
  Country: US (occurrence: US)
  Receive Date: 20121002
  Receipt Date: 20121002
  Transmission Date: 20130627
  Serious: No
  Sender: FDA-Public Use
  Company Number: US-009507513-1209USA010982

PATIENT
  Age: 53 Year
  Sex: Male

DRUGS (1)
  1. MIRALAX [Suspect]
     Indication: COLONOSCOPY
     Dosage: 85 g, UNK
     Route: 048
     Dates: start: 20120905, end: 20120905

REACTIONS (4)
  - Vomiting [Not Recovered/Not Resolved]
  - Headache [Unknown]
  - Overdose [Unknown]
  - Off label use [Unknown]
